FAERS Safety Report 19238788 (Version 1)
Quarter: 2021Q2

REPORT INFORMATION
  Report Type: Spontaneous
  Country: PL (occurrence: PL)
  Receive Date: 20210510
  Receipt Date: 20210510
  Transmission Date: 20210717
  Serious: Yes (Other)
  Sender: FDA-Public Use
  Company Number: PL-PFIZER INC-2021473103

PATIENT
  Age: 61 Year
  Sex: Male
  Weight: 84 kg

DRUGS (1)
  1. SUTENT [Suspect]
     Active Substance: SUNITINIB MALATE
     Indication: RENAL CANCER
     Dosage: 50 MG
     Route: 048

REACTIONS (11)
  - Fatigue [Unknown]
  - Inflammation [Unknown]
  - Neutrophilia [Unknown]
  - Anaemia [Unknown]
  - Chronic kidney disease [Unknown]
  - Neutropenia [Unknown]
  - Thrombocytosis [Unknown]
  - Skin lesion [Unknown]
  - Muscular weakness [Unknown]
  - Hyperthyroidism [Unknown]
  - Leukocytosis [Unknown]
